FAERS Safety Report 9303509 (Version 2)
Quarter: 2013Q2

REPORT INFORMATION
  Report Type: Spontaneous
  Country: US (occurrence: US)
  Receive Date: 20130522
  Receipt Date: 20130628
  Transmission Date: 20140414
  Serious: No
  Sender: FDA-Public Use
  Company Number: US-PFIZER INC-2013152454

PATIENT
  Sex: Male
  Weight: 175 kg

DRUGS (19)
  1. NAVANE [Suspect]
     Indication: PSYCHOTIC DISORDER
     Dosage: 10 MG, 3X/DAY
     Dates: start: 1978
  2. BOTOX [Suspect]
     Indication: TARDIVE DYSKINESIA
     Dosage: UNK
  3. BOTOX [Suspect]
     Indication: HEAD DISCOMFORT
  4. PAXIL [Concomitant]
     Dosage: 10 MG, 3X/DAY
  5. TRILEPTAL [Concomitant]
     Dosage: 300 MG, 3X/DAY
  6. KLONOPIN [Concomitant]
     Dosage: 1 MG, 4X/DAY
  7. METOPROLOL [Concomitant]
     Dosage: 100 MG, 1X/DAY
  8. HYZAAR [Concomitant]
     Dosage: 100MG (HYDROCHLOROTHIAZIDE)/25MG (LOSARTAN POTASSIUM), DAILY
  9. KLOR-CON [Concomitant]
     Dosage: 1 DF, 1X/DAY
     Route: 048
  10. ASPIRIN [Concomitant]
     Dosage: UNK
  11. ABILIFY [Concomitant]
     Dosage: 20 MG, UNK
  12. LASIX [Concomitant]
     Indication: HYPERTENSION
     Dosage: 40 MG, 2X/DAY
  13. TAMSULOSIN [Concomitant]
     Indication: PROSTATIC DISORDER
     Dosage: UNK
  14. LEVOTHYROXINE [Concomitant]
     Indication: HYPOTHYROIDISM
     Dosage: 100 MG, 1X/DAY
  15. GERITOL [Concomitant]
     Indication: VITAMIN SUPPLEMENTATION
     Dosage: DAILY
  16. RANITIDINE [Concomitant]
     Indication: GASTROOESOPHAGEAL REFLUX DISEASE
     Dosage: 100 MG, 2X/DAY
  17. NORVASC [Concomitant]
     Dosage: 10 MG, 1X/DAY
  18. METOLAZONE [Concomitant]
     Dosage: 0.5 MG, 3X/DAY
  19. BABY ASPIRIN [Concomitant]
     Dosage: UNK

REACTIONS (2)
  - Tremor [Not Recovered/Not Resolved]
  - Drug ineffective [Unknown]
